FAERS Safety Report 9941587 (Version 1)
Quarter: 2014Q1

REPORT INFORMATION
  Report Type: Report from Study
  Country: US (occurrence: US)
  Receive Date: 20140303
  Receipt Date: 20140303
  Transmission Date: 20141002
  Serious: No
  Sender: FDA-Public Use
  Company Number: US-ABBVIE-13P-163-1040194-00

PATIENT
  Age: 56 Year
  Sex: Female

DRUGS (5)
  1. HUMIRA [Suspect]
     Indication: COLITIS ULCERATIVE
     Dosage: LOADING DOSE
     Dates: start: 20130114
  2. LEVOTHYROXINE [Concomitant]
     Indication: THYROID DISORDER
  3. EVISTA [Concomitant]
     Indication: OSTEOPENIA
  4. HCTZ [Concomitant]
     Indication: HYPERTENSION
  5. EFFEXOR [Concomitant]
     Indication: FIBROMYALGIA

REACTIONS (2)
  - Injection site pain [Not Recovered/Not Resolved]
  - Injection site bruising [Not Recovered/Not Resolved]
